FAERS Safety Report 10375809 (Version 1)
Quarter: 2014Q1

REPORT INFORMATION
  Report Type: Spontaneous
  Country: US (occurrence: None)
  Receive Date: 20140306
  Receipt Date: 20140306
  Transmission Date: 20141002
  Serious: Yes (Hospitalization)
  Sender: FDA-Public Use
  Company Number: 163-21880-13110867

PATIENT
  Age: 25 Year
  Sex: Male

DRUGS (9)
  1. REVLIMID (LENALIDOMIDE) (25 MILLIGRAM, CAPSULES) [Suspect]
     Dosage: 25 MG, 14 IN 21 D, PO
     Route: 048
     Dates: start: 20130809
  2. DEXAMETHASONE(DEXAMETHASONE) [Concomitant]
  3. VALACYLCOVIR(VALACICLOVIR HYDROCHLORIDE) [Concomitant]
  4. HYDROMORPHONE(HYDROMORPHONE) [Concomitant]
  5. VITAMIN C (ASCORBIC ACID) [Concomitant]
  6. VITAMIN D3 (COLECALCIFEROL) [Concomitant]
  7. BLACK CUMIN ELIXIR(OTHER THERAPEUTIC PRODUCTS) [Concomitant]
  8. TUMERIC WITH VINEGAR(OTHER THERAPEUTIC PRODUCTS) [Concomitant]
  9. TRIPLE ACTION CRUCIFEROUS MULTIPLE SEA GREENS(OTHER THERAPEUTIC PRODUCTS) [Concomitant]

REACTIONS (1)
  - Pulmonary embolism [None]
